FAERS Safety Report 11632937 (Version 2)
Quarter: 2015Q4

REPORT INFORMATION
  Report Type: Report from Study
  Country: ES (occurrence: ES)
  Receive Date: 20151015
  Receipt Date: 20151130
  Transmission Date: 20160304
  Serious: Yes (Other)
  Sender: FDA-Public Use
  Company Number: PHHY2013ES086111

PATIENT
  Age: 69 Year
  Sex: Male

DRUGS (5)
  1. EXJADE [Suspect]
     Active Substance: DEFERASIROX
     Dosage: 1000 MG, QD
     Route: 048
     Dates: start: 20120726, end: 20120801
  2. EXJADE [Suspect]
     Active Substance: DEFERASIROX
     Indication: HAEMOSIDEROSIS
     Dosage: 500 MG, QD
     Route: 048
     Dates: start: 20111201, end: 20120119
  3. EXJADE [Suspect]
     Active Substance: DEFERASIROX
     Dosage: 500 MG, QD
     Route: 048
     Dates: start: 20120802, end: 20131128
  4. EXJADE [Suspect]
     Active Substance: DEFERASIROX
     Dosage: 500 MG, QD
     Route: 048
     Dates: start: 20120510, end: 20120725
  5. EXJADE [Suspect]
     Active Substance: DEFERASIROX
     Dosage: 500 MG, QD
     Route: 048
     Dates: start: 20140424

REACTIONS (33)
  - Haemoptysis [Unknown]
  - Renal failure [Recovered/Resolved]
  - Blood creatinine increased [Unknown]
  - Cellulitis [Recovered/Resolved]
  - Tooth abscess [Recovered/Resolved]
  - Pyrexia [Recovered/Resolved]
  - Cough [Recovered/Resolved]
  - Oral herpes [Recovered/Resolved]
  - Oedema peripheral [Recovered/Resolved]
  - Tinnitus [Recovered/Resolved]
  - Febrile neutropenia [Recovered/Resolved]
  - Asthenia [Recovered/Resolved]
  - Bronchospasm [Recovered/Resolved]
  - Dyspnoea [Recovered/Resolved]
  - Stomatitis [Recovered/Resolved]
  - Aphthous ulcer [Recovered/Resolved]
  - Mastitis [Unknown]
  - Leukopenia [Unknown]
  - Anaemia [Unknown]
  - Catarrh [Recovered/Resolved]
  - Rash [Unknown]
  - Productive cough [Recovered/Resolved]
  - Oral candidiasis [Recovered/Resolved]
  - Oral pain [Recovered/Resolved]
  - Tachypnoea [Recovered/Resolved]
  - Hypoxia [Recovered/Resolved]
  - Pseudomonas infection [Recovered/Resolved]
  - Gingival pain [Recovered/Resolved]
  - Fatigue [Recovered/Resolved]
  - Thrombocytopenia [Unknown]
  - Neutropenia [Unknown]
  - Aphonia [Recovered/Resolved]
  - Constipation [Recovered/Resolved]

NARRATIVE: CASE EVENT DATE: 20111201
